FAERS Safety Report 9715962 (Version 1)
Quarter: 2013Q4

REPORT INFORMATION
  Report Type: Spontaneous
  Country: DE (occurrence: DE)
  Receive Date: 20131127
  Receipt Date: 20131127
  Transmission Date: 20140711
  Serious: Yes (Life-Threatening, Other)
  Sender: FDA-Public Use
  Company Number: DE-DRREDDYS-GER/GER/13/0035849

PATIENT
  Age: 39 Year
  Sex: Female

DRUGS (5)
  1. ASS [Concomitant]
     Indication: PRODUCT USED FOR UNKNOWN INDICATION
     Route: 048
     Dates: start: 20130629
  2. METOPROLOL [Concomitant]
     Indication: PRODUCT USED FOR UNKNOWN INDICATION
     Route: 048
     Dates: start: 201307
  3. ATOSIL [Concomitant]
     Indication: PRODUCT USED FOR UNKNOWN INDICATION
     Dates: start: 20130808
  4. SERTRALINE [Suspect]
     Indication: PRODUCT USED FOR UNKNOWN INDICATION
     Route: 048
     Dates: start: 20130804, end: 20130815
  5. SERTRALINE [Suspect]
     Route: 048
     Dates: start: 20130816, end: 20130823

REACTIONS (2)
  - Suicidal ideation [Unknown]
  - Fear [Unknown]
